FAERS Safety Report 7512188-4 (Version None)
Quarter: 2011Q2

REPORT INFORMATION
  Report Type: 
  Country: None (occurrence: None)
  Receive Date: 20110531
  Receipt Date: 20110525
  Transmission Date: 20111010
  Serious: Yes (Life-Threatening, Hospitalization, Disabling)
  Sender: FDA-Public Use
  Company Number: GB-PFIZER INC-2011078783

PATIENT
  Age: 85 Year
  Sex: Female

DRUGS (13)
  1. METRONIDAZOLE [Suspect]
     Indication: LOWER RESPIRATORY TRACT INFECTION
     Dosage: 400 MG, 3X/DAY
     Route: 048
     Dates: start: 20110323, end: 20110324
  2. FLUCONAZOLE [Concomitant]
  3. GAVISCON [Concomitant]
  4. NYSTATIN [Concomitant]
  5. CLARITHROMYCIN [Suspect]
  6. CODEINE [Concomitant]
  7. PARACETAMOL [Concomitant]
  8. LISINOPRIL [Concomitant]
  9. CYCLIZINE [Concomitant]
  10. METOCLOPRAMIDE [Concomitant]
  11. CLARITHROMYCIN [Suspect]
     Indication: LOWER RESPIRATORY TRACT INFECTION
     Dosage: 500 MG, 2X/DAY
     Route: 048
     Dates: start: 20110323, end: 20110324
  12. AMITRIPTYLINE [Concomitant]
  13. ESOMEPRAZOLE [Concomitant]

REACTIONS (3)
  - DELIRIUM [None]
  - ENCEPHALITIS [None]
  - CONFUSIONAL STATE [None]
